FAERS Safety Report 10009251 (Version 3)
Quarter: 2015Q3

REPORT INFORMATION
  Report Type: Spontaneous
  Country: US (occurrence: US)
  Receive Date: 20140313
  Receipt Date: 20150814
  Transmission Date: 20151125
  Serious: Yes (Hospitalization)
  Sender: FDA-Public Use
  Company Number: US-GILEAD-2013-0072769

PATIENT
  Age: 65 Year
  Sex: Female

DRUGS (4)
  1. CPAP [Concomitant]
     Active Substance: DEVICE
  2. LETAIRIS [Suspect]
     Active Substance: AMBRISENTAN
     Indication: PRODUCT USED FOR UNKNOWN INDICATION
     Dosage: 10 MG, QD
     Route: 048
     Dates: start: 20091020
  3. REVATIO [Concomitant]
     Active Substance: SILDENAFIL CITRATE
  4. LETAIRIS [Suspect]
     Active Substance: AMBRISENTAN
     Dates: start: 20091022

REACTIONS (5)
  - Weight decreased [Unknown]
  - Syncope [Unknown]
  - Loss of consciousness [Unknown]
  - Oedema peripheral [Unknown]
  - Sleep apnoea syndrome [Unknown]
